FAERS Safety Report 5642635-4 (Version None)
Quarter: 2008Q1

REPORT INFORMATION
  Report Type: 
  Country: None (occurrence: None)
  Receive Date: 20080227
  Receipt Date: 20080227
  Transmission Date: 20080703
  Serious: Yes (Hospitalization)
  Sender: FDA-Public Use
  Company Number: None

PATIENT
  Sex: Female
  Weight: 124.7392 kg

DRUGS (3)
  1. LITHIUM CARBONATE [Suspect]
     Indication: BIPOLAR DISORDER
     Dosage: PO   (THERAPY DATES: PRIOR TO ADMISSION)
     Route: 048
  2. LEXAPRO [Concomitant]
  3. VISTARIL [Concomitant]

REACTIONS (2)
  - DRUG LEVEL INCREASED [None]
  - VOMITING [None]
